FAERS Safety Report 5533304-X (Version None)
Quarter: 2007Q4

REPORT INFORMATION
  Report Type: 
  Country: None (occurrence: None)
  Receive Date: 20071128
  Receipt Date: 20071113
  Transmission Date: 20080405
  Serious: Yes (Hospitalization)
  Sender: FDA-Public Use
  Company Number: 164242USA

PATIENT
  Age: 52 Year
  Sex: Female
  Weight: 68 kg

DRUGS (9)
  1. CALCIUM FOLINATE 100 MG BASE/VIAL (FOLINIC ACID) [Suspect]
     Indication: COLORECTAL CANCER METASTATIC
     Dosage: 660 MG, INTRAVENOUS, INTRAVENOUS (NOT OTHERWISE SPECIFIED)
     Route: 042
     Dates: start: 20040813
  2. FLUOROURACIL [Suspect]
     Indication: COLORECTAL CANCER METASTATIC
     Dosage: 660 MG PLUS 3960 MG, INTRAVENOUS, INTRAVENOUS (NOT OTHERWISE SPECIFIED)
     Route: 042
     Dates: start: 20040813
  3. IRINOTECAN HCL [Suspect]
     Indication: COLORECTAL CANCER METASTATIC
     Dosage: 297 MG, INTRAVENOUS, INTRAVENOUS (NOT OTHERWISE SPECIFIED)
     Route: 042
     Dates: start: 20040813
  4. CELECOXIB [Suspect]
     Indication: COLORECTAL CANCER METASTATIC
     Dosage: 800 MG, ORAL (400 MG 2 IN 1 D), ORAL
     Route: 048
     Dates: start: 20040813
  5. BEVACIZUMAB [Suspect]
     Indication: COLORECTAL CANCER METASTATIC
     Dosage: 324 MG, INTRAVENOUS, INTRAVENOUS (NOT OTHERWISE SPECIFIED)
     Route: 042
     Dates: start: 20040813
  6. LOMOTIL [Concomitant]
  7. PROCHLORPERAZINE EDISYLATE [Concomitant]
  8. DEXAMETHASONE TAB [Concomitant]
  9. ONDANSETRON [Concomitant]

REACTIONS (3)
  - ABDOMINAL PAIN [None]
  - CONSTIPATION [None]
  - SMALL INTESTINAL OBSTRUCTION [None]
